FAERS Safety Report 15579686 (Version 1)
Quarter: 2018Q4

REPORT INFORMATION
  Report Type: Spontaneous
  Country: US (occurrence: US)
  Receive Date: 20181102
  Receipt Date: 20181102
  Transmission Date: 20190205
  Serious: Yes (Hospitalization, Other)
  Sender: FDA-Public Use
  Company Number: US-PFIZER INC-2018435320

PATIENT
  Sex: Female

DRUGS (6)
  1. VISTARIL [Suspect]
     Active Substance: HYDROXYZINE PAMOATE
     Dosage: UNK
  2. RISPERIDONE. [Suspect]
     Active Substance: RISPERIDONE
     Dosage: UNK
  3. INVEGA [Suspect]
     Active Substance: PALIPERIDONE
     Dosage: UNK
  4. ATIVAN [Suspect]
     Active Substance: LORAZEPAM
  5. RISPERDAL [Suspect]
     Active Substance: RISPERIDONE
     Dosage: UNK
  6. BUSPAR [Suspect]
     Active Substance: BUSPIRONE HYDROCHLORIDE
     Dosage: UNK

REACTIONS (10)
  - Vaginal haemorrhage [Unknown]
  - Menstruation irregular [Unknown]
  - Feeling abnormal [Unknown]
  - Influenza [Unknown]
  - Rheumatoid arthritis [Unknown]
  - Colitis [Unknown]
  - Chronic obstructive pulmonary disease [Unknown]
  - Hepatic cirrhosis [Unknown]
  - Syncope [Unknown]
  - Somnolence [Unknown]

NARRATIVE: CASE EVENT DATE: 2010
